FAERS Safety Report 16108375 (Version 1)
Quarter: 2019Q1

REPORT INFORMATION
  Report Type: Other
  Country: DE (occurrence: DE)
  Receive Date: 20190323
  Receipt Date: 20190323
  Transmission Date: 20190418
  Serious: Yes (Life-Threatening, Other)
  Sender: FDA-Public Use
  Company Number: DE-APOTEX-2019AP009674

PATIENT
  Age: 48 Year
  Sex: Female
  Weight: 70 kg

DRUGS (5)
  1. PANTOPRAZOLE [Suspect]
     Active Substance: PANTOPRAZOLE
     Indication: PRODUCT USED FOR UNKNOWN INDICATION
     Dosage: UNK
     Route: 065
  2. FRAGMIN P [Concomitant]
     Active Substance: DALTEPARIN SODIUM
     Indication: PRODUCT USED FOR UNKNOWN INDICATION
     Dosage: UNK
     Route: 065
  3. TILIDINE [Concomitant]
     Active Substance: TILIDINE
     Indication: PAIN
     Dosage: UNK
     Route: 048
  4. METAMIZOL                          /06276701/ [Suspect]
     Active Substance: METAMIZOLE
     Indication: PAIN
     Dosage: UNK
     Route: 048
     Dates: start: 20170701
  5. IBUPROFEN. [Concomitant]
     Active Substance: IBUPROFEN
     Indication: PAIN
     Dosage: UNK
     Route: 048

REACTIONS (2)
  - Toxic epidermal necrolysis [Not Recovered/Not Resolved]
  - Product substitution issue [Not Recovered/Not Resolved]

NARRATIVE: CASE EVENT DATE: 20170701
